FAERS Safety Report 9744431 (Version 1)
Quarter: 2013Q4

REPORT INFORMATION
  Report Type: Spontaneous
  Country: DK (occurrence: DK)
  Receive Date: 20131210
  Receipt Date: 20131210
  Transmission Date: 20140711
  Serious: Yes (Hospitalization)
  Sender: FDA-Public Use
  Company Number: DK-B.I. PHARMACEUTICALS,INC./RIDGEFIELD-2013-BI-40546DB

PATIENT
  Age: 79 Year
  Sex: Female

DRUGS (10)
  1. PERSANTIN RETARD [Suspect]
     Indication: ATRIAL FIBRILLATION
     Dosage: 400 MG
     Route: 048
     Dates: end: 20131126
  2. HJERDYL [Suspect]
     Indication: ATRIAL FIBRILLATION
     Dosage: 75 MG
     Route: 048
     Dates: end: 20131126
  3. CIPROFLOXACIN [Concomitant]
     Indication: URINARY TRACT INFECTION
     Dates: start: 20131117, end: 20131126
  4. LAMISIL / TERBINAFINE HYDROCHLORIDE [Concomitant]
     Indication: LOCALISED INFECTION
     Route: 061
     Dates: start: 20131115, end: 20131126
  5. LAKTULOSE ^SAD^ / LACTULOSE [Concomitant]
     Indication: CONSTIPATION
     Dosage: 667 MG/ML
     Route: 048
     Dates: start: 201202
  6. MANDOLGIN /TRAMADOL HYDROCHLORIDE [Concomitant]
     Indication: PAIN
  7. PALEXIA DEPOT / TAPENTADOL HYDROCHLORIDE [Concomitant]
     Indication: PAIN
     Route: 048
  8. PANODIL / PARACETAMOL [Concomitant]
     Indication: PAIN
  9. MOVICOL / SODIUM HYDROGEN CARBONATE + MACROGOL 3350 + SODIUM CHLORIDE [Concomitant]
     Indication: CONSTIPATION
     Route: 048
  10. UNIKALK / VITAMIN D + CALCIUM [Concomitant]

REACTIONS (2)
  - Cerebral haemorrhage [Recovered/Resolved with Sequelae]
  - Confusional state [Unknown]
